FAERS Safety Report 4661990-5 (Version None)
Quarter: 2005Q2

REPORT INFORMATION
  Report Type: 
  Country: None (occurrence: None)
  Receive Date: 20050512
  Receipt Date: 20050512
  Transmission Date: 20051028
  Serious: Yes (Other)
  Sender: FDA-Public Use
  Company Number: None

PATIENT
  Sex: Female

DRUGS (1)
  1. TEGRETOL [Suspect]
     Indication: COMPLEX PARTIAL SEIZURES
     Dosage: 2AM + 2.5PM
     Dates: start: 20040901

REACTIONS (4)
  - CONDITION AGGRAVATED [None]
  - CONVULSION [None]
  - DRUG INEFFECTIVE [None]
  - THERAPEUTIC RESPONSE UNEXPECTED WITH DRUG SUBSTITUTION [None]
